FAERS Safety Report 18474038 (Version 1)
Quarter: 2020Q4

REPORT INFORMATION
  Report Type: Spontaneous
  Country: US (occurrence: US)
  Receive Date: 20201106
  Receipt Date: 20201106
  Transmission Date: 20210114
  Serious: No
  Sender: FDA-Public Use
  Company Number: None

PATIENT
  Age: 66 Year
  Sex: Male
  Weight: 94.5 kg

DRUGS (1)
  1. TISSUEBLUE [Suspect]
     Active Substance: BRILLIANT BLUE G
     Indication: EYE OPERATION
     Dosage: ?          OTHER FREQUENCY:ONCE;?
     Route: 031

REACTIONS (3)
  - Post procedural complication [None]
  - Non-infectious endophthalmitis [None]
  - Ocular procedural complication [None]

NARRATIVE: CASE EVENT DATE: 20200722
